FAERS Safety Report 4826266-1 (Version None)
Quarter: 2005Q4

REPORT INFORMATION
  Report Type: 
  Country: None (occurrence: None)
  Receive Date: 20051109
  Receipt Date: 20051109
  Transmission Date: 20060501
  Serious: Yes (Other)
  Sender: FDA-Public Use
  Company Number: None

PATIENT
  Age: 56 Year
  Sex: Male

DRUGS (3)
  1. ALPHA VIII; ALPHA THERAPEUTIC CORPORATION [Suspect]
     Indication: FACTOR VIII DEFICIENCY
     Dosage: IV
     Route: 042
  2. PROFILATE [Suspect]
     Indication: FACTOR VIII DEFICIENCY
     Dosage: IV
     Route: 042
  3. KOATE [Concomitant]

REACTIONS (4)
  - ADVERSE DRUG REACTION [None]
  - HEPATITIS C VIRUS [None]
  - PHARMACEUTICAL PRODUCT COMPLAINT [None]
  - POOR QUALITY DRUG ADMINISTERED [None]
